FAERS Safety Report 10602562 (Version 2)
Quarter: 2014Q4

REPORT INFORMATION
  Report Type: Not Available
  Country: FI (occurrence: FI)
  Receive Date: 20141124
  Receipt Date: 20141124
  Transmission Date: 20150529
  Serious: Yes (Other)
  Sender: FDA-Public Use
  Company Number: FI-MUNDIPHARMA DS AND PHARMACOVIGILANCE-GBR-2014-0023822

PATIENT
  Age: 58 Year
  Sex: Male

DRUGS (3)
  1. SIMVASTATIN. [Concomitant]
     Active Substance: SIMVASTATIN
     Indication: BLOOD CHOLESTEROL INCREASED
     Dosage: 20 MG, DAILY
     Route: 048
     Dates: start: 20040101
  2. NORSPAN [Suspect]
     Active Substance: BUPRENORPHINE
     Indication: PAIN
     Dosage: 20 MCG, HOUR
     Route: 061
     Dates: start: 20130101, end: 20140430
  3. DIOVAN COMP [Concomitant]
     Indication: BLOOD PRESSURE INCREASED
     Dosage: 160/12.5, DAILY
     Route: 048
     Dates: start: 20030101

REACTIONS (3)
  - Time perception altered [Recovered/Resolved]
  - Disturbance in attention [Recovered/Resolved]
  - Memory impairment [Recovered/Resolved]

NARRATIVE: CASE EVENT DATE: 20140201
